FAERS Safety Report 18389502 (Version 1)
Quarter: 2020Q4

REPORT INFORMATION
  Report Type: Report from Study
  Country: None (occurrence: FR)
  Receive Date: 20201015
  Receipt Date: 20201015
  Transmission Date: 20210114
  Serious: Yes (Other)
  Sender: FDA-Public Use
  Company Number: FR-ABBVIE-20K-056-3609544-00

PATIENT
  Age: 78 Year
  Sex: Male

DRUGS (2)
  1. DUODOPA [Suspect]
     Active Substance: CARBIDOPA\LEVODOPA
     Dosage: CONTINUOUS FLOW 5 ML/H
     Route: 050
     Dates: start: 20201013
  2. DUODOPA [Suspect]
     Active Substance: CARBIDOPA\LEVODOPA
     Indication: PARKINSON^S DISEASE
     Dosage: CONTINUOUS FLOW 3.9 ML/H
     Route: 050
     Dates: start: 201711

REACTIONS (2)
  - Hypokinesia [Not Recovered/Not Resolved]
  - Obstruction [Not Recovered/Not Resolved]
